FAERS Safety Report 11270554 (Version 1)
Quarter: 2015Q3

REPORT INFORMATION
  Report Type: Spontaneous
  Country: SA (occurrence: SA)
  Receive Date: 20150714
  Receipt Date: 20150714
  Transmission Date: 20151125
  Serious: Yes (Death, Other)
  Sender: FDA-Public Use
  Company Number: PHHY2015SA080805

PATIENT
  Age: 13 Year
  Sex: Female

DRUGS (3)
  1. VORICONAZOLE. [Suspect]
     Active Substance: VORICONAZOLE
     Indication: CEREBRAL ASPERGILLOSIS
     Route: 065
  2. AMPHOTERICIN B. [Suspect]
     Active Substance: AMPHOTERICIN B
     Indication: CEREBRAL ASPERGILLOSIS
     Route: 065
  3. ITRACONAZOLE. [Suspect]
     Active Substance: ITRACONAZOLE
     Indication: CEREBRAL ASPERGILLOSIS
     Route: 065

REACTIONS (6)
  - Death [Fatal]
  - Drug ineffective [Unknown]
  - Brain oedema [Unknown]
  - Pyrexia [Unknown]
  - Cerebral aspergillosis [Unknown]
  - Hypokalaemia [Unknown]
